FAERS Safety Report 7327493-4 (Version None)
Quarter: 2011Q1

REPORT INFORMATION
  Report Type: 
  Country: None (occurrence: None)
  Receive Date: 20110303
  Receipt Date: 20110218
  Transmission Date: 20110831
  Serious: No
  Sender: FDA-Public Use
  Company Number: US-BIOGENIDEC-2010BI041842

PATIENT
  Sex: Male

DRUGS (3)
  1. TYSABRI [Suspect]
     Indication: MULTIPLE SCLEROSIS
     Route: 042
     Dates: start: 20100218
  2. AVONEX [Concomitant]
     Route: 030
     Dates: start: 20020828, end: 20030101
  3. AVONEX [Concomitant]
     Indication: MULTIPLE SCLEROSIS
     Route: 030
     Dates: start: 20031222

REACTIONS (6)
  - MUSCULAR WEAKNESS [None]
  - DEPRESSION [None]
  - PAIN IN EXTREMITY [None]
  - GAIT DISTURBANCE [None]
  - DRUG INEFFECTIVE [None]
  - VISUAL IMPAIRMENT [None]
